FAERS Safety Report 16160639 (Version 1)
Quarter: 2019Q2

REPORT INFORMATION
  Report Type: Spontaneous
  Country: GB (occurrence: GB)
  Receive Date: 20190405
  Receipt Date: 20190405
  Transmission Date: 20190711
  Serious: Yes (Other)
  Sender: FDA-Public Use
  Company Number: GB-TEVA-2019-GB-1032872

PATIENT
  Age: 82 Year
  Sex: Female
  Weight: 50.8 kg

DRUGS (5)
  1. DUORESP SPIROMAX [Concomitant]
     Active Substance: BUDESONIDE\FORMOTEROL
  2. AMLODIPINE [Concomitant]
     Active Substance: AMLODIPINE BESYLATE
  3. TRIMETHOPRIM. [Suspect]
     Active Substance: TRIMETHOPRIM
     Indication: URINARY TRACT INFECTION
     Dosage: 40 MILLIGRAM DAILY;
     Route: 048
     Dates: start: 20190304, end: 20190307
  4. LISINOPRIL DIHYDRATE [Concomitant]
     Active Substance: LISINOPRIL
  5. MONOMIL XL [Concomitant]
     Active Substance: ISOSORBIDE MONONITRATE

REACTIONS (3)
  - Tremor [Recovering/Resolving]
  - Gait disturbance [Unknown]
  - Nausea [Recovering/Resolving]

NARRATIVE: CASE EVENT DATE: 20190304
